FAERS Safety Report 25008595 (Version 1)
Quarter: 2025Q1

REPORT INFORMATION
  Report Type: Spontaneous
  Country: US (occurrence: None)
  Receive Date: 20250224
  Receipt Date: 20250224
  Transmission Date: 20250408
  Serious: Yes (Death)
  Sender: FDA-CTU
  Company Number: None

PATIENT
  Age: 51 Year
  Sex: Female
  Weight: 65.8 kg

DRUGS (2)
  1. CEFTRIAXONE [Suspect]
     Active Substance: CEFTRIAXONE
     Indication: Pneumonia
     Dosage: FREQUENCY : DAILY;?
     Route: 042
     Dates: start: 20241231, end: 20250115
  2. METRONIDAZOLE [Suspect]
     Active Substance: METRONIDAZOLE

REACTIONS (12)
  - Haemolytic anaemia [None]
  - Pulseless electrical activity [None]
  - Tachycardia [None]
  - Yellow skin [None]
  - Oxygen saturation decreased [None]
  - Agonal respiration [None]
  - Pleural effusion [None]
  - Sepsis [None]
  - Coronary artery occlusion [None]
  - Candida test positive [None]
  - Streptococcus test positive [None]
  - Cerebral infarction [None]

NARRATIVE: CASE EVENT DATE: 20250115
